FAERS Safety Report 13619355 (Version 1)
Quarter: 2017Q2

REPORT INFORMATION
  Report Type: Spontaneous
  Country: US (occurrence: US)
  Receive Date: 20170606
  Receipt Date: 20170606
  Transmission Date: 20170830
  Serious: Yes (Hospitalization, Disabling)
  Sender: FDA-Public Use
  Company Number: None

PATIENT
  Age: 59 Year
  Sex: Male
  Weight: 90 kg

DRUGS (2)
  1. SEROQUEL [Suspect]
     Active Substance: QUETIAPINE FUMARATE
     Indication: BIPOLAR DISORDER
     Dosage: ?          QUANTITY:1 TABLET(S); AT BEDTIME ORAL?
     Route: 048
  2. ATIVAN [Concomitant]
     Active Substance: LORAZEPAM

REACTIONS (2)
  - Fear [None]
  - Chest pain [None]

NARRATIVE: CASE EVENT DATE: 20170415
